FAERS Safety Report 10134538 (Version 2)
Quarter: 2020Q2

REPORT INFORMATION
  Report Type: Report from Study
  Country: None (occurrence: CA)
  Receive Date: 20140428
  Receipt Date: 20200422
  Transmission Date: 20200713
  Serious: Yes (Other)
  Sender: FDA-Public Use
  Company Number: CA-ABBVIE-14P-028-1227438-00

PATIENT
  Sex: Female
  Weight: 97.61 kg

DRUGS (2)
  1. HUMIRA [Suspect]
     Active Substance: ADALIMUMAB
     Route: 058
     Dates: start: 20140417
  2. HUMIRA [Suspect]
     Active Substance: ADALIMUMAB
     Indication: RHEUMATOID ARTHRITIS
     Route: 058
     Dates: start: 20080624, end: 20140305

REACTIONS (6)
  - Pain [Not Recovered/Not Resolved]
  - Chondrocalcinosis pyrophosphate [Recovering/Resolving]
  - Arthritis [Recovering/Resolving]
  - Cellulitis [Recovered/Resolved]
  - Arthralgia [Unknown]
  - Arthropathy [Unknown]
